FAERS Safety Report 24677351 (Version 2)
Quarter: 2025Q2

REPORT INFORMATION
  Report Type: Spontaneous
  Country: JP (occurrence: JP)
  Receive Date: 20241129
  Receipt Date: 20250424
  Transmission Date: 20250716
  Serious: Yes (Hospitalization, Other)
  Sender: VIIV
  Company Number: JP-ViiV Healthcare-JP2024JPN146263

PATIENT

DRUGS (12)
  1. EPIVIR [Suspect]
     Active Substance: LAMIVUDINE
     Indication: HIV infection
  2. EPZICOM [Suspect]
     Active Substance: ABACAVIR SULFATE\LAMIVUDINE
     Indication: HIV infection
  3. TIVICAY [Suspect]
     Active Substance: DOLUTEGRAVIR SODIUM
     Indication: HIV infection
  4. EFAVIRENZ [Concomitant]
     Active Substance: EFAVIRENZ
     Indication: HIV infection
  5. ZERIT [Concomitant]
     Active Substance: STAVUDINE
     Indication: HIV infection
  6. PREZISTA [Concomitant]
     Active Substance: DARUNAVIR ETHANOLATE
     Indication: HIV infection
  7. NORVIR [Concomitant]
     Active Substance: RITONAVIR
     Indication: HIV infection
  8. DESCOVY [Concomitant]
     Active Substance: EMTRICITABINE\TENOFOVIR ALAFENAMIDE FUMARATE
     Indication: HIV infection
  9. SYMTUZA [Concomitant]
     Active Substance: COBICISTAT\DARUNAVIR\EMTRICITABINE\TENOFOVIR ALAFENAMIDE
     Indication: HIV infection
  10. VONOPRAZAN FUMARATE [Concomitant]
     Active Substance: VONOPRAZAN FUMARATE
     Dosage: 10 MG, QD
  11. LEMBOREXANT [Concomitant]
     Active Substance: LEMBOREXANT
     Dosage: 5 MG, QD
  12. RAMELTEON [Concomitant]
     Active Substance: RAMELTEON
     Dosage: 8 MG, QD

REACTIONS (16)
  - Pneumocystis jirovecii pneumonia [Unknown]
  - Disseminated mycobacterium avium complex infection [Unknown]
  - Cytomegalovirus oesophagitis [Unknown]
  - Liver abscess [Unknown]
  - Ascites [Unknown]
  - Ileus paralytic [Unknown]
  - Cytomegalovirus colitis [Unknown]
  - Cytomegalovirus pancreatitis [Unknown]
  - Immune reconstitution inflammatory syndrome [Unknown]
  - Heart failure with reduced ejection fraction [Recovered/Resolved]
  - CD4 lymphocytes abnormal [Unknown]
  - Abscess limb [Unknown]
  - Muscular weakness [Unknown]
  - Staphylococcal infection [Unknown]
  - Depression [Unknown]
  - Therapy interrupted [Unknown]
